FAERS Safety Report 17802980 (Version 3)
Quarter: 2020Q3

REPORT INFORMATION
  Report Type: Spontaneous
  Country: US (occurrence: US)
  Receive Date: 20200519
  Receipt Date: 20200701
  Transmission Date: 20201102
  Serious: No
  Sender: FDA-Public Use
  Company Number: US-BIOGEN-2020BI00876518

PATIENT
  Age: 44 Year
  Sex: Male

DRUGS (2)
  1. TECFIDERA [Suspect]
     Active Substance: DIMETHYL FUMARATE
     Indication: MULTIPLE SCLEROSIS
     Route: 048
     Dates: start: 202004
  2. ROPINIROLE HCL [Concomitant]
     Active Substance: ROPINIROLE HYDROCHLORIDE
     Route: 048

REACTIONS (16)
  - Eye pain [Unknown]
  - Peripheral sensory neuropathy [Unknown]
  - Drug ineffective [Unknown]
  - Fall [Recovered/Resolved]
  - Sleep disorder [Unknown]
  - Restless legs syndrome [Unknown]
  - Vision blurred [Unknown]
  - Abdominal discomfort [Unknown]
  - Palpitations [Recovered/Resolved]
  - Head injury [Unknown]
  - Musculoskeletal disorder [Unknown]
  - Cognitive disorder [Unknown]
  - Injury [Unknown]
  - Temperature intolerance [Unknown]
  - Swollen tongue [Recovered/Resolved]
  - Anxiety [Unknown]

NARRATIVE: CASE EVENT DATE: 20200401
